FAERS Safety Report 8302450-X (Version None)
Quarter: 2012Q2

REPORT INFORMATION
  Report Type: 
  Country: None (occurrence: None)
  Receive Date: 20120420
  Receipt Date: 20120415
  Transmission Date: 20120825
  Serious: Yes (Hospitalization, Other)
  Sender: FDA-Public Use
  Company Number: US-US-EMD SERONO, INC.-7011333

PATIENT
  Sex: Female
  Weight: 68 kg

DRUGS (7)
  1. REBIF [Suspect]
     Route: 058
     Dates: start: 20100101, end: 20100809
  2. REBIF [Suspect]
     Route: 058
     Dates: start: 20110601
  3. REBIF [Suspect]
     Route: 058
     Dates: start: 20100809, end: 20101201
  4. BENICAR [Concomitant]
     Indication: HYPERTENSION
     Dates: end: 20100801
  5. METFORMIN HCL [Concomitant]
     Indication: GLUCOSE TOLERANCE IMPAIRED
  6. EXTRA STRENGTH TYLENOL [Concomitant]
     Indication: PREMEDICATION
  7. REBIF [Suspect]
     Indication: MULTIPLE SCLEROSIS
     Route: 058
     Dates: start: 20100708

REACTIONS (17)
  - HYPERTENSION [None]
  - FALL [None]
  - UPPER LIMB FRACTURE [None]
  - CONTUSION [None]
  - APHAGIA [None]
  - HEAD INJURY [None]
  - LIGAMENT SPRAIN [None]
  - CENTRAL NERVOUS SYSTEM LESION [None]
  - FULL BLOOD COUNT DECREASED [None]
  - CORONARY ARTERY STENOSIS [None]
  - INFLUENZA LIKE ILLNESS [None]
  - HYPOAESTHESIA [None]
  - ARTERIOSCLEROSIS CORONARY ARTERY [None]
  - ANKLE FRACTURE [None]
  - DEHYDRATION [None]
  - MULTIPLE SCLEROSIS RELAPSE [None]
  - INJECTION SITE REACTION [None]
